FAERS Safety Report 17256702 (Version 10)
Quarter: 2020Q1

REPORT INFORMATION
  Report Type: Spontaneous
  Country: US (occurrence: US)
  Receive Date: 20200110
  Receipt Date: 20200327
  Transmission Date: 20200409
  Serious: Yes (Hospitalization)
  Sender: FDA-Public Use
  Company Number: US-CELGENEUS-USA-20200102332

PATIENT
  Age: 84 Year
  Sex: Female

DRUGS (2)
  1. REVLIMID [Suspect]
     Active Substance: LENALIDOMIDE
     Indication: PLASMA CELL MYELOMA
     Dosage: 25 MILLIGRAM
     Route: 048
     Dates: start: 20190803
  2. REVLIMID [Suspect]
     Active Substance: LENALIDOMIDE
     Indication: BLOOD TEST ABNORMAL
     Dosage: 25 MILLIGRAM
     Route: 048
     Dates: start: 202002

REACTIONS (10)
  - Taste disorder [Unknown]
  - Weight decreased [Unknown]
  - Joint swelling [Unknown]
  - Blood sodium decreased [Recovered/Resolved]
  - Peripheral swelling [Recovered/Resolved]
  - Blood potassium decreased [Recovered/Resolved]
  - Paraesthesia [Unknown]
  - Red blood cell count abnormal [Unknown]
  - Pneumonia [Recovered/Resolved]
  - Pruritus [Unknown]

NARRATIVE: CASE EVENT DATE: 202001
